FAERS Safety Report 10172776 (Version 1)
Quarter: 2014Q2

REPORT INFORMATION
  Report Type: Spontaneous
  Country: US (occurrence: None)
  Receive Date: 20140513
  Receipt Date: 20140513
  Transmission Date: 20141212
  Serious: Yes (Other)
  Sender: FDA-Public Use
  Company Number: 2014-US-005283

PATIENT
  Age: 36 Year
  Sex: Female

DRUGS (2)
  1. XYREM (SODIUM OXYBATE) ORAL SOLUTION, 500MG/ML [Suspect]
     Indication: NARCOLEPSY
     Dosage: 4 G, FIRST DOSE, ORAL
     Route: 048
     Dates: start: 201012
  2. XYREM (SODIUM OXYBATE) ORAL SOLUTION, 500MG/ML [Suspect]
     Indication: CATAPLEXY
     Dosage: 4 G, FIRST DOSE, ORAL
     Route: 048
     Dates: start: 201012

REACTIONS (2)
  - Neoplasm [None]
  - Galactorrhoea [None]
